FAERS Safety Report 14322206 (Version 1)
Quarter: 2017Q4

REPORT INFORMATION
  Report Type: Report from Study
  Country: IL (occurrence: IL)
  Receive Date: 20171225
  Receipt Date: 20171225
  Transmission Date: 20180321
  Serious: Yes (Other)
  Sender: FDA-Public Use
  Company Number: PHHY2017IL187085

PATIENT

DRUGS (1)
  1. SANDOSTATIN LAR DEPOT [Suspect]
     Active Substance: OCTREOTIDE ACETATE
     Indication: ACRAL OVERGROWTH
     Dosage: 30 MG, Q4W
     Route: 030
     Dates: start: 20160731

REACTIONS (4)
  - Tooth fracture [Not Recovered/Not Resolved]
  - Joint dislocation [Unknown]
  - Fall [Recovered/Resolved]
  - Rib fracture [Not Recovered/Not Resolved]

NARRATIVE: CASE EVENT DATE: 20171209
